FAERS Safety Report 25441948 (Version 1)
Quarter: 2025Q2

REPORT INFORMATION
  Report Type: Spontaneous
  Country: FI (occurrence: FI)
  Receive Date: 20250616
  Receipt Date: 20250616
  Transmission Date: 20250717
  Serious: Yes (Death)
  Sender: AMGEN
  Company Number: FI-BEH-2025209233

PATIENT
  Age: 28 Year
  Sex: Female

DRUGS (4)
  1. TAVNEOS [Suspect]
     Active Substance: AVACOPAN
     Indication: Product used for unknown indication
     Dosage: 30 MG, BID
     Route: 048
     Dates: start: 20250227, end: 202503
  2. TAVNEOS [Suspect]
     Active Substance: AVACOPAN
     Dosage: 30 MG, BID
     Route: 048
     Dates: start: 20250402
  3. PREDNISOLONE [Concomitant]
     Active Substance: PREDNISOLONE
     Route: 065
     Dates: start: 202502
  4. RITUXIMAB [Concomitant]
     Active Substance: RITUXIMAB
     Route: 065
     Dates: start: 202503

REACTIONS (4)
  - Respiratory failure [Fatal]
  - Dyspnoea [Fatal]
  - Infection [Unknown]
  - Inability to afford medication [Unknown]

NARRATIVE: CASE EVENT DATE: 20250301
